FAERS Safety Report 13483593 (Version 1)
Quarter: 2017Q2

REPORT INFORMATION
  Report Type: Spontaneous
  Country: IT (occurrence: IT)
  Receive Date: 20170426
  Receipt Date: 20170426
  Transmission Date: 20170830
  Serious: Yes (Hospitalization, Other)
  Sender: FDA-Public Use
  Company Number: IT-CIPLA LTD.-2017IT07207

PATIENT

DRUGS (9)
  1. MITOXANTRONE [Suspect]
     Active Substance: MITOXANTRONE HYDROCHLORIDE
     Indication: ACUTE PROMYELOCYTIC LEUKAEMIA
     Dosage: UNK
     Route: 065
     Dates: start: 201307, end: 201311
  2. ALL-TRANSRETINOIC ACID [Suspect]
     Active Substance: TRETINOIN
     Indication: ACUTE PROMYELOCYTIC LEUKAEMIA
     Dosage: UNK
     Route: 065
  3. VINCRISTINE [Suspect]
     Active Substance: VINCRISTINE
     Indication: OLIGOASTROCYTOMA
     Dosage: UNK
     Route: 065
     Dates: start: 2004
  4. LOMUSTINE. [Suspect]
     Active Substance: LOMUSTINE
     Indication: OLIGOASTROCYTOMA
     Dosage: UNK
     Route: 065
     Dates: start: 2004
  5. LEVETIRACETAM. [Suspect]
     Active Substance: LEVETIRACETAM
     Indication: PROPHYLAXIS
     Dosage: UNK
     Route: 065
  6. IDARUBICIN [Suspect]
     Active Substance: IDARUBICIN
     Indication: ACUTE PROMYELOCYTIC LEUKAEMIA
     Dosage: 12 MG/M2, UNK
     Route: 065
  7. PROCARBAZINE [Suspect]
     Active Substance: PROCARBAZINE
     Indication: OLIGOASTROCYTOMA
     Dosage: UNK
     Route: 065
     Dates: start: 2004
  8. OXCARBAZEPINE. [Suspect]
     Active Substance: OXCARBAZEPINE
     Indication: PROPHYLAXIS
     Dosage: UNK
     Route: 065
  9. METHYLPREDNISOLONE. [Suspect]
     Active Substance: METHYLPREDNISOLONE
     Indication: IMMUNE THROMBOCYTOPENIC PURPURA
     Dosage: 1 MG/KG/DAY
     Route: 042

REACTIONS (6)
  - Systemic immune activation [Unknown]
  - Large granular lymphocytosis [Recovering/Resolving]
  - Febrile neutropenia [Recovering/Resolving]
  - Condition aggravated [Recovering/Resolving]
  - Infection [Unknown]
  - Acute promyelocytic leukaemia [Recovering/Resolving]
